FAERS Safety Report 23315560 (Version 2)
Quarter: 2024Q4

REPORT INFORMATION
  Report Type: Spontaneous
  Country: US (occurrence: US)
  Receive Date: 20231219
  Receipt Date: 20241219
  Transmission Date: 20250114
  Serious: No
  Sender: PACIRA
  Company Number: US-ORG100016242-2023000311

PATIENT
  Age: 73 Year
  Sex: Female

DRUGS (1)
  1. EXPAREL [Suspect]
     Active Substance: BUPIVACAINE
     Indication: Shoulder arthroplasty
     Route: 065
     Dates: start: 20231023, end: 20231023

REACTIONS (3)
  - Therapeutic response shortened [Unknown]
  - Product use issue [Unknown]
  - Pain [Unknown]
